FAERS Safety Report 7888348-X (Version None)
Quarter: 2011Q4

REPORT INFORMATION
  Report Type: 
  Country: None (occurrence: None)
  Receive Date: 20111103
  Receipt Date: 20111020
  Transmission Date: 20120403
  Serious: Yes (Other)
  Sender: FDA-Public Use
  Company Number: PHHY2011JP91789

PATIENT
  Age: 70 Year
  Sex: Male

DRUGS (1)
  1. RASILEZ [Suspect]
     Dosage: UNK UKN, UNK
     Route: 048

REACTIONS (2)
  - TONGUE OEDEMA [None]
  - TONGUE HAEMORRHAGE [None]
